FAERS Safety Report 8309515-7 (Version None)
Quarter: 2012Q2

REPORT INFORMATION
  Report Type: 
  Country: None (occurrence: None)
  Receive Date: 20120425
  Receipt Date: 20120420
  Transmission Date: 20120825
  Serious: Yes (Other)
  Sender: FDA-Public Use
  Company Number: US-PFIZER INC-2012098480

PATIENT
  Sex: Male
  Weight: 95 kg

DRUGS (2)
  1. VIAGRA [Suspect]
     Indication: TESTICULAR DISORDER
     Dosage: 100 MG, AS NEEDED
     Dates: start: 20120418
  2. VIAGRA [Suspect]
     Indication: EJACULATION DISORDER

REACTIONS (4)
  - TESTICULAR PAIN [None]
  - PENILE PAIN [None]
  - TESTICULAR DISORDER [None]
  - ERECTION INCREASED [None]
